FAERS Safety Report 9263499 (Version 1)
Quarter: 2013Q2

REPORT INFORMATION
  Report Type: Spontaneous
  Country: US (occurrence: US)
  Receive Date: 20130430
  Receipt Date: 20130430
  Transmission Date: 20140414
  Serious: No
  Sender: FDA-Public Use
  Company Number: US-ABBOTT-13P-163-1043080-00

PATIENT
  Age: 76 Year
  Sex: Female
  Weight: 49.94 kg

DRUGS (5)
  1. CREON [Suspect]
     Indication: ENZYME ACTIVITY DECREASED
     Dosage: 2 CAPSULES WITH EACH MEAL AND SNACK
     Dates: start: 20130117
  2. CREON [Suspect]
     Indication: PANCREATIC INSUFFICIENCY
  3. SYNTHROID [Concomitant]
     Indication: HYPOTHYROIDISM
  4. DISONOXILATE? [Concomitant]
     Indication: PRODUCT USED FOR UNKNOWN INDICATION
  5. LOMOTIL [Concomitant]
     Indication: DIARRHOEA

REACTIONS (1)
  - Diarrhoea [Not Recovered/Not Resolved]
